FAERS Safety Report 24559728 (Version 1)
Quarter: 2024Q4

REPORT INFORMATION
  Report Type: Spontaneous
  Country: US (occurrence: US)
  Receive Date: 20241029
  Receipt Date: 20241029
  Transmission Date: 20250114
  Serious: No
  Sender: AJANTA PHARMA USA INC
  Company Number: US-AJANTA-2024AJA00143

PATIENT
  Age: 82 Year
  Sex: Female
  Weight: 185 kg

DRUGS (8)
  1. CHOLESTYRAMINE [Suspect]
     Active Substance: CHOLESTYRAMINE
     Indication: Diarrhoea
     Route: 048
     Dates: start: 202408
  2. CHOLESTYRAMINE [Suspect]
     Active Substance: CHOLESTYRAMINE
     Dates: end: 2024
  3. IRBESARTAN [Concomitant]
     Active Substance: IRBESARTAN
  4. AMLODIPINE BESYLATE [Concomitant]
     Active Substance: AMLODIPINE BESYLATE
  5. PRAVASTATIN [Concomitant]
     Active Substance: PRAVASTATIN
  6. PIROXICAM [Concomitant]
     Active Substance: PIROXICAM
  7. CITALOPRAM [Concomitant]
     Active Substance: CITALOPRAM
  8. OCUVITE [Concomitant]
     Active Substance: VITAMINS

REACTIONS (5)
  - Choking sensation [Unknown]
  - Retching [Unknown]
  - Oropharyngeal discomfort [Unknown]
  - Product solubility abnormal [Unknown]
  - Product use in unapproved indication [Unknown]

NARRATIVE: CASE EVENT DATE: 20240801
